FAERS Safety Report 8560642-9 (Version None)
Quarter: 2012Q3

REPORT INFORMATION
  Report Type: 
  Country: None (occurrence: None)
  Receive Date: 20120802
  Receipt Date: 20120725
  Transmission Date: 20120928
  Serious: No
  Sender: FDA-Public Use
  Company Number: US-PFIZER INC-2012184304

PATIENT
  Sex: Male
  Weight: 104 kg

DRUGS (2)
  1. VIAGRA [Suspect]
     Indication: ERECTILE DYSFUNCTION
  2. VIAGRA [Suspect]
     Indication: CARDIAC DISORDER
     Dosage: UNK

REACTIONS (2)
  - DISTURBANCE IN SEXUAL AROUSAL [None]
  - MALE ORGASMIC DISORDER [None]
